FAERS Safety Report 7571627-3 (Version None)
Quarter: 2011Q2

REPORT INFORMATION
  Report Type: 
  Country: None (occurrence: None)
  Receive Date: 20110624
  Receipt Date: 20110620
  Transmission Date: 20111010
  Serious: Yes (Hospitalization)
  Sender: FDA-Public Use
  Company Number: GP-MERCK-1106FRA00079

PATIENT
  Age: 15 Year
  Sex: Male

DRUGS (1)
  1. SINGULAIR [Suspect]
     Indication: ASTHMA
     Route: 048
     Dates: start: 20100801, end: 20100901

REACTIONS (2)
  - SKIN EXFOLIATION [None]
  - DERMATITIS [None]
